FAERS Safety Report 9257044 (Version 2)
Quarter: 2013Q3

REPORT INFORMATION
  Report Type: Spontaneous
  Country: IT (occurrence: None)
  Receive Date: 20130424
  Receipt Date: 20130913
  Transmission Date: 20140515
  Serious: Yes (Hospitalization)
  Sender: FDA-Public Use
  Company Number: AUR-APL-2013-03234

PATIENT
  Age: 65 Year
  Sex: 0

DRUGS (2)
  1. ATENOLOL [Suspect]
     Indication: PRODUCT USED FOR UNKNOWN INDICATION
     Dosage: 2 DOSAGE FORMS, TOTAL
     Dates: start: 20121219, end: 20121219
  2. NORVASC (AMLODIPINE BESILATE) [Concomitant]

REACTIONS (5)
  - Blood pressure decreased [None]
  - Presyncope [None]
  - Cold sweat [None]
  - Wrong drug administered [None]
  - Medication error [None]
